FAERS Safety Report 9924440 (Version 5)
Quarter: 2014Q1

REPORT INFORMATION
  Report Type: Report from Study
  Country: BR (occurrence: BR)
  Receive Date: 20140226
  Receipt Date: 20140326
  Transmission Date: 20141002
  Serious: Yes (Life-Threatening, Hospitalization, Other)
  Sender: FDA-Public Use
  Company Number: BR-ROCHE-1351578

PATIENT
  Age: 79 Year
  Sex: Male

DRUGS (25)
  1. RITUXIMAB [Suspect]
     Indication: DIFFUSE LARGE B-CELL LYMPHOMA
     Route: 042
     Dates: start: 20140207
  2. RHUPH20/RITUXIMAB [Suspect]
     Indication: DIFFUSE LARGE B-CELL LYMPHOMA
     Route: 058
     Dates: end: 20140228
  3. RHUPH20/RITUXIMAB [Suspect]
     Route: 058
     Dates: start: 20140321
  4. VINCRISTINE [Suspect]
     Indication: DIFFUSE LARGE B-CELL LYMPHOMA
     Route: 065
     Dates: start: 20140207, end: 20140228
  5. VINCRISTINE [Suspect]
     Route: 065
     Dates: start: 20140321
  6. CYCLOPHOSPHAMIDE [Suspect]
     Indication: DIFFUSE LARGE B-CELL LYMPHOMA
     Route: 065
     Dates: start: 20140207, end: 20140228
  7. CYCLOPHOSPHAMIDE [Suspect]
     Route: 065
     Dates: start: 20140321
  8. DOXORUBICIN [Suspect]
     Indication: DIFFUSE LARGE B-CELL LYMPHOMA
     Route: 065
     Dates: start: 20140207, end: 20140228
  9. DOXORUBICIN [Suspect]
     Route: 065
     Dates: start: 20140321
  10. PREDNISONE [Suspect]
     Indication: DIFFUSE LARGE B-CELL LYMPHOMA
     Route: 065
     Dates: start: 20140207, end: 20140228
  11. PREDNISONE [Suspect]
     Route: 065
     Dates: start: 20140321
  12. SIMVASTATIN [Concomitant]
     Route: 048
     Dates: start: 2013
  13. SIMVASTATIN [Concomitant]
     Route: 048
     Dates: start: 201307
  14. COLCHICINE [Concomitant]
     Route: 048
     Dates: start: 2013
  15. COLCHICINE [Concomitant]
     Route: 048
     Dates: start: 201307
  16. ATENOLOL [Concomitant]
     Route: 048
     Dates: start: 2013
  17. ATENOLOL [Concomitant]
     Route: 048
     Dates: start: 201306
  18. FORASEQ [Concomitant]
     Route: 050
     Dates: start: 200909
  19. ACETYLSALICYLIC ACID [Concomitant]
     Route: 048
     Dates: start: 201306
  20. PARACETAMOL [Concomitant]
     Route: 048
     Dates: start: 20140207, end: 20140207
  21. ONDANSETRON [Concomitant]
     Route: 042
     Dates: start: 20140207, end: 20140207
  22. HYDROCORTISONE [Concomitant]
     Route: 042
     Dates: start: 20140207, end: 20140207
  23. SODIUM CHLORIDE [Concomitant]
     Route: 042
     Dates: start: 20140310, end: 20140310
  24. SODIUM CHLORIDE [Concomitant]
     Route: 042
     Dates: start: 20140312, end: 20140312
  25. METRONIDAZOLE [Concomitant]
     Route: 048
     Dates: start: 20140313

REACTIONS (3)
  - Neutrophil count decreased [Recovered/Resolved]
  - Abdominal distension [Recovered/Resolved]
  - Pain [Recovered/Resolved]
